FAERS Safety Report 9818497 (Version 2)
Quarter: 2014Q1

REPORT INFORMATION
  Report Type: Spontaneous
  Country: US (occurrence: US)
  Receive Date: 20140115
  Receipt Date: 20140220
  Transmission Date: 20141002
  Serious: No
  Sender: FDA-Public Use
  Company Number: US-009507513-1401USA004733

PATIENT
  Age: 83 Year
  Sex: Male

DRUGS (2)
  1. NASONEX [Suspect]
     Indication: SNORING
     Dosage: 4 DF, QD
     Route: 045
     Dates: start: 201311
  2. VITAMINS (UNSPECIFIED) [Concomitant]

REACTIONS (4)
  - Dry mouth [Not Recovered/Not Resolved]
  - Underdose [Unknown]
  - Drug administration error [Unknown]
  - Off label use [Unknown]
